FAERS Safety Report 10390189 (Version 1)
Quarter: 2014Q3

REPORT INFORMATION
  Report Type: Spontaneous
  Country: US (occurrence: US)
  Receive Date: 20140818
  Receipt Date: 20140818
  Transmission Date: 20150326
  Serious: Yes (Other)
  Sender: FDA-Public Use
  Company Number: US-PFIZER INC-2014227723

PATIENT
  Age: 44 Year
  Sex: Female
  Weight: 54 kg

DRUGS (3)
  1. OXYCODONE [Concomitant]
     Active Substance: OXYCODONE
     Indication: PAIN
     Dosage: UNK
  2. CELEBREX [Suspect]
     Active Substance: CELECOXIB
     Indication: NEUROPATHY PERIPHERAL
     Dosage: 200 MG, AS NEEDED
     Route: 048
     Dates: start: 2013
  3. TAMOXIFEN [Concomitant]
     Active Substance: TAMOXIFEN
     Indication: PAIN
     Dosage: UNK

REACTIONS (3)
  - Paralysis [Unknown]
  - Muscular weakness [Unknown]
  - Monoplegia [Unknown]

NARRATIVE: CASE EVENT DATE: 2014
